FAERS Safety Report 20580894 (Version 1)
Quarter: 2022Q1

REPORT INFORMATION
  Report Type: Spontaneous
  Country: RU (occurrence: RU)
  Receive Date: 20220311
  Receipt Date: 20220311
  Transmission Date: 20220423
  Serious: Yes (Other)
  Sender: FDA-Public Use
  Company Number: None

PATIENT
  Age: 70 Year
  Sex: Female
  Weight: 64 kg

DRUGS (4)
  1. FIASP [Suspect]
     Active Substance: INSULIN ASPART
     Indication: Diabetes mellitus
     Dosage: 20 IU
     Route: 058
     Dates: start: 20210505, end: 20210529
  2. LISINOPRIL [Concomitant]
     Active Substance: LISINOPRIL
     Indication: Hypertension
     Dosage: UNK
     Route: 048
     Dates: start: 20210505, end: 20210605
  3. MOXONIDINE CANON [Concomitant]
     Indication: Hypertension
     Dosage: SITUATIONALLY
     Route: 048
     Dates: start: 20210430
  4. TOUJEO [Concomitant]
     Active Substance: INSULIN GLARGINE
     Indication: Diabetes mellitus
     Dosage: 16 IU
     Route: 058
     Dates: start: 20210505, end: 20210605

REACTIONS (2)
  - Carbohydrate metabolism disorder [Unknown]
  - Drug ineffective [Recovering/Resolving]
